FAERS Safety Report 15691546 (Version 1)
Quarter: 2018Q4

REPORT INFORMATION
  Report Type: Spontaneous
  Country: TR (occurrence: TR)
  Receive Date: 20181205
  Receipt Date: 20181205
  Transmission Date: 20190205
  Serious: Yes (Hospitalization, Congenital Anomaly, Other)
  Sender: FDA-Public Use
  Company Number: TR-MYLANLABS-2018M1088123

PATIENT
  Sex: Male

DRUGS (1)
  1. INDOMETACIN [Suspect]
     Active Substance: INDOMETHACIN
     Indication: UTERINE CONTRACTIONS DURING PREGNANCY
     Dosage: STARTED ON THE DAY OF THE OPERATION UNTIL POSTOPERATIVE DAY 2
     Route: 064

REACTIONS (7)
  - Foetal disorder [Recovered/Resolved]
  - Foetal exposure during pregnancy [Recovered/Resolved]
  - Ascites [Recovered/Resolved]
  - Pleural effusion [Recovered/Resolved]
  - Hydrops foetalis [Recovered/Resolved]
  - Congenital tricuspid valve incompetence [Recovered/Resolved]
  - Ductus arteriosus stenosis foetal [Recovered/Resolved]
